FAERS Safety Report 5167364-5 (Version None)
Quarter: 2006Q4

REPORT INFORMATION
  Report Type: 
  Country: None (occurrence: None)
  Receive Date: 20061130
  Receipt Date: 20061117
  Transmission Date: 20070319
  Serious: Yes (Death)
  Sender: FDA-Public Use
  Company Number: 2006144108

PATIENT
  Age: 5 Month
  Sex: Male

DRUGS (4)
  1. ZYVOX [Suspect]
     Indication: ENTEROCOCCAL INFECTION
     Dosage: INTRAVENOUS
     Route: 042
     Dates: start: 20060820, end: 20060827
  2. TETRACYCLIN (TETRACYCLINE) [Concomitant]
  3. VANCOMYCIN [Concomitant]
  4. IMIPENEM (IMIPENEM) [Concomitant]

REACTIONS (1)
  - DRUG INEFFECTIVE [None]
